FAERS Safety Report 15588735 (Version 3)
Quarter: 2018Q4

REPORT INFORMATION
  Report Type: Spontaneous
  Country: US (occurrence: US)
  Receive Date: 20181106
  Receipt Date: 20181123
  Transmission Date: 20190205
  Serious: Yes (Other)
  Sender: FDA-Public Use
  Company Number: US-AMGEN INC.-USASP2018155000

PATIENT
  Age: 45 Year
  Sex: Female

DRUGS (8)
  1. PHENERGAN [Concomitant]
     Active Substance: PROMETHAZINE HYDROCHLORIDE
     Dosage: 25 MG, AS NEEDED
     Route: 048
  2. DOXEPIN HCL [Concomitant]
     Active Substance: DOXEPIN HYDROCHLORIDE
     Dosage: 10 MG,QHS, TO BE TAKEN WITH 25MG FOR TOTAL OF 35MG
     Dates: start: 20180626
  3. DOXEPIN HCL [Concomitant]
     Active Substance: DOXEPIN HYDROCHLORIDE
     Indication: MIGRAINE WITHOUT AURA
     Dosage: 25 MG, QHS
     Dates: start: 20171212
  4. MEDROL [Concomitant]
     Active Substance: METHYLPREDNISOLONE
     Indication: MIGRAINE WITHOUT AURA
     Dosage: 4 MG, ONE PACKET AS NEEDED
     Dates: start: 20180515
  5. KETOROLAC TROMETHAMINE. [Concomitant]
     Active Substance: KETOROLAC TROMETHAMINE
     Indication: MIGRAINE WITHOUT AURA
     Dosage: 30 MG/ML, AS NECESSARY
  6. AIMOVIG [Suspect]
     Active Substance: ERENUMAB-AOOE
     Indication: MIGRAINE PROPHYLAXIS
     Dosage: 70 MG, QMO
     Route: 065
     Dates: start: 20181002, end: 20181102
  7. CORGARD [Concomitant]
     Active Substance: NADOLOL
     Indication: MIGRAINE WITHOUT AURA
     Dosage: 20 MG, BID, ONE HALF TABLET
     Dates: start: 20171212
  8. JUNEL [Concomitant]
     Active Substance: ETHINYL ESTRADIOL\NORETHINDRONE ACETATE
     Dosage: 1.5-30MG-MCG, 1 DAILY
     Route: 048

REACTIONS (6)
  - Nausea [Unknown]
  - Paraesthesia [Unknown]
  - Facial pain [Unknown]
  - Vision blurred [Recovering/Resolving]
  - Balance disorder [Unknown]
  - Drug ineffective [Unknown]

NARRATIVE: CASE EVENT DATE: 2018
